FAERS Safety Report 7520295-5 (Version None)
Quarter: 2011Q2

REPORT INFORMATION
  Report Type: 
  Country: None (occurrence: None)
  Receive Date: 20110602
  Receipt Date: 20110526
  Transmission Date: 20111010
  Serious: Yes (Other)
  Sender: FDA-Public Use
  Company Number: US-US-EMD SERONO, INC.-236573J08USA

PATIENT
  Sex: Female

DRUGS (4)
  1. URSODIOL [Concomitant]
     Indication: BILE DUCT STENOSIS
     Route: 065
  2. WELCHOL [Concomitant]
     Route: 065
  3. TYLENOL-500 [Concomitant]
     Indication: PREMEDICATION
     Route: 065
  4. REBIF [Suspect]
     Indication: MULTIPLE SCLEROSIS
     Route: 058
     Dates: start: 20060710

REACTIONS (9)
  - BASEDOW'S DISEASE [None]
  - DIZZINESS [None]
  - INJECTION SITE MASS [None]
  - BALANCE DISORDER [None]
  - GAIT DISTURBANCE [None]
  - FALL [None]
  - FATIGUE [None]
  - WRIST FRACTURE [None]
  - CENTRAL NERVOUS SYSTEM LESION [None]
